FAERS Safety Report 15679536 (Version 1)
Quarter: 2018Q4

REPORT INFORMATION
  Report Type: Report from Study
  Country: US (occurrence: US)
  Receive Date: 20181203
  Receipt Date: 20181203
  Transmission Date: 20190205
  Serious: No
  Sender: FDA-Public Use
  Company Number: PHEH2018US049823

PATIENT
  Sex: Female

DRUGS (1)
  1. COSENTYX [Suspect]
     Active Substance: SECUKINUMAB
     Indication: PRODUCT USED FOR UNKNOWN INDICATION
     Route: 065

REACTIONS (8)
  - Headache [Unknown]
  - Paraesthesia [Unknown]
  - Arthralgia [Unknown]
  - Depression [Unknown]
  - Rhinorrhoea [Unknown]
  - Anxiety [Unknown]
  - Feeling abnormal [Unknown]
  - Chest discomfort [Unknown]
